FAERS Safety Report 5663261-7 (Version None)
Quarter: 2008Q1

REPORT INFORMATION
  Report Type: 
  Country: None (occurrence: None)
  Receive Date: 20080311
  Receipt Date: 20080311
  Transmission Date: 20080703
  Serious: Yes (Other)
  Sender: FDA-Public Use
  Company Number: None

PATIENT
  Age: 41 Year
  Sex: Female
  Weight: 72.5755 kg

DRUGS (1)
  1. ABILIFY [Suspect]
     Indication: BIPOLAR I DISORDER
     Dosage: 5MG ONE DAILY PO
     Route: 048
     Dates: start: 20070515, end: 20080306

REACTIONS (2)
  - HEPATOCELLULAR INJURY [None]
  - METABOLIC SYNDROME [None]
